FAERS Safety Report 17586063 (Version 1)
Quarter: 2020Q1

REPORT INFORMATION
  Report Type: Spontaneous
  Country: US (occurrence: US)
  Receive Date: 20200326
  Receipt Date: 20200326
  Transmission Date: 20200409
  Serious: No
  Sender: FDA-Public Use
  Company Number: None

PATIENT
  Sex: Female

DRUGS (17)
  1. VITAMIN D [Concomitant]
     Active Substance: VITAMIN D NOS
  2. OMEPRAZOLE. [Concomitant]
     Active Substance: OMEPRAZOLE
  3. ARAVA [Concomitant]
     Active Substance: LEFLUNOMIDE
  4. ACETAMIN [Concomitant]
     Active Substance: ACETAMINOPHEN
  5. OMEPRAZOLE. [Concomitant]
     Active Substance: OMEPRAZOLE
  6. GABAPENTIN. [Concomitant]
     Active Substance: GABAPENTIN
  7. ORENCIA [Suspect]
     Active Substance: ABATACEPT
     Dosage: ?          OTHER FREQUENCY:EVERY 7 DAYS;?
     Route: 058
  8. ATORVASTATIN [Concomitant]
     Active Substance: ATORVASTATIN
  9. XELJANZ [Concomitant]
     Active Substance: TOFACITINIB CITRATE
  10. COQ10 [Concomitant]
     Active Substance: UBIDECARENONE
  11. LIDO/PRILOCN CREAM [Concomitant]
  12. HYDROCHLOROT [Concomitant]
     Active Substance: HYDROCHLOROTHIAZIDE
  13. RESTASIS [Concomitant]
     Active Substance: CYCLOSPORINE
  14. NAPROSYN [Concomitant]
     Active Substance: NAPROXEN
  15. PREVACID [Concomitant]
     Active Substance: LANSOPRAZOLE
  16. LOVAZA [Concomitant]
     Active Substance: OMEGA-3-ACID ETHYL ESTERS
  17. ASPIRIN. [Concomitant]
     Active Substance: ASPIRIN

REACTIONS (2)
  - Therapy cessation [None]
  - Surgery [None]
